FAERS Safety Report 10098472 (Version 2)
Quarter: 2014Q2

REPORT INFORMATION
  Report Type: Spontaneous
  Country: FR (occurrence: FR)
  Receive Date: 20140423
  Receipt Date: 20140511
  Transmission Date: 20141212
  Serious: Yes (Other)
  Sender: FDA-Public Use
  Company Number: FR-ROCHE-1385173

PATIENT
  Sex: Male

DRUGS (5)
  1. MIRCERA [Suspect]
     Indication: ANAEMIA
     Route: 065
     Dates: start: 20131011, end: 20131106
  2. MIRCERA [Suspect]
     Route: 065
     Dates: start: 20131106, end: 20131204
  3. MIRCERA [Suspect]
     Route: 065
     Dates: start: 20131204, end: 20131213
  4. ARANESP [Concomitant]
     Route: 065
     Dates: start: 20130504, end: 20131011
  5. ARANESP [Concomitant]
     Route: 065
     Dates: start: 20131213

REACTIONS (2)
  - Haemoglobin decreased [Recovered/Resolved]
  - Reticulocyte count decreased [Recovered/Resolved]
